FAERS Safety Report 18392606 (Version 17)
Quarter: 2021Q3

REPORT INFORMATION
  Report Type: Spontaneous
  Country: GB (occurrence: GB)
  Receive Date: 20201016
  Receipt Date: 20210722
  Transmission Date: 20211014
  Serious: Yes (Other)
  Sender: FDA-Public Use
  Company Number: GB-GLAXOSMITHKLINE-GB2020201947

PATIENT
  Age: 51 Year
  Sex: Male
  Weight: 53 kg

DRUGS (97)
  1. COLECALCIFEROL [Suspect]
     Active Substance: CHOLECALCIFEROL
     Dosage: UNK UNK, QD(TABLET(1D) / UNK, QD (TABLET(1D)) )
     Route: 065
  2. COLECALCIFEROL [Suspect]
     Active Substance: CHOLECALCIFEROL
     Dosage: 8 DF, QD
     Route: 065
  3. CALCIUM + VITAMIN D3 [Suspect]
     Active Substance: CALCIUM\CHOLECALCIFEROL
     Dosage: UNK, QD (UNK UNK, QD)
     Route: 065
  4. CALCIUM [Suspect]
     Active Substance: CALCIUM
     Indication: MINERAL SUPPLEMENTATION
     Dosage: 8 DF, QD
     Route: 065
  5. SODIUM CHLORIDE. [Suspect]
     Active Substance: SODIUM CHLORIDE
     Indication: MEDICATION DILUTION
     Dosage: UNK
     Route: 065
     Dates: start: 20200825, end: 20200825
  6. ETOPOSIDE. [Suspect]
     Active Substance: ETOPOSIDE
     Dosage: 360 MG (IN 1 LITER 2 BAGS (360 MG))
     Route: 065
     Dates: start: 20200825, end: 20200825
  7. ADCAL D3 [Suspect]
     Active Substance: CALCIUM CARBONATE\CHOLECALCIFEROL
     Dosage: UNK
     Route: 065
  8. ADCAL D3 [Suspect]
     Active Substance: CALCIUM CARBONATE\CHOLECALCIFEROL
     Dosage: UNK UNK, QD(TABLET 2UNK )
     Route: 065
  9. APREPITANT. [Suspect]
     Active Substance: APREPITANT
     Dosage: 125 MG, (D1 (125 MG)
     Route: 065
     Dates: start: 20200826
  10. APREPITANT. [Suspect]
     Active Substance: APREPITANT
     Dosage: 80 MG
     Route: 065
     Dates: start: 20200826
  11. ONDANSETRON [Suspect]
     Active Substance: ONDANSETRON
     Indication: SUPPORTIVE CARE
     Dosage: 16 MG, QD (FOR 3 DAYS (16 MG,1 D/ORODISPERSIBLE FILM))
     Route: 048
     Dates: start: 20200825
  12. PROPYPHENAZONE [Suspect]
     Active Substance: PROPYPHENAZONE
     Dosage: 300 MG, QD
     Route: 065
  13. CALCIUM AND COLECALCIFEROL [Suspect]
     Active Substance: CALCIUM\CHOLECALCIFEROL
     Dosage: 8 DF, QD
     Route: 065
  14. COLECALCIFEROL [Suspect]
     Active Substance: CHOLECALCIFEROL
     Dosage: 2 DF, QD
     Route: 065
  15. THIAMINE HYDROCHLORIDE. [Suspect]
     Active Substance: THIAMINE HYDROCHLORIDE
     Indication: NUTRITIONAL SUPPLEMENTATION
     Dosage: 1 DF
     Route: 065
  16. CALCIUM [Suspect]
     Active Substance: CALCIUM
     Dosage: UNK, QD (1 UNK, QD )
     Route: 065
  17. SODIUM CHLORIDE. [Suspect]
     Active Substance: SODIUM CHLORIDE
     Indication: MEDICATION DILUTION
     Dosage: 0.9 %, (UNKNOWN)
     Route: 065
     Dates: start: 20200825, end: 20200825
  18. NAUZELIN [Suspect]
     Active Substance: DOMPERIDONE
     Dosage: 30 MG, QD
     Route: 048
     Dates: start: 20200825
  19. ETOPOSIDE. [Suspect]
     Active Substance: ETOPOSIDE
     Dosage: 360 MG (360 MG (IN 1 LITER 2 BAGS (360 MG))
     Route: 065
     Dates: start: 20200825, end: 20200825
  20. ADCAL D3 [Suspect]
     Active Substance: CALCIUM CARBONATE\CHOLECALCIFEROL
     Dosage: 2 DF, QD (2 DF, QD (TABLET), TABLET 2UNK)
     Route: 065
  21. ADCAL D3 [Suspect]
     Active Substance: CALCIUM CARBONATE\CHOLECALCIFEROL
     Dosage: UNK, QD (UNK UNK, QD)
     Route: 065
  22. ADCAL D3 [Suspect]
     Active Substance: CALCIUM CARBONATE\CHOLECALCIFEROL
     Dosage: 2 DF ( TABLET 2 (2 DOSAGE FORMS)
     Route: 048
  23. DEXAMETHASONE. [Suspect]
     Active Substance: DEXAMETHASONE
     Indication: SUPPORTIVE CARE
     Dosage: 8 MG, QD(8MILLIGRAM, QD)
     Route: 048
     Dates: start: 20200825
  24. APREPITANT. [Suspect]
     Active Substance: APREPITANT
     Dosage: UNK UNK, QD
     Route: 065
  25. APREPITANT. [Suspect]
     Active Substance: APREPITANT
     Dosage: 125 MG (D1 (125 MG))
     Route: 065
     Dates: start: 20200825
  26. APREPITANT. [Suspect]
     Active Substance: APREPITANT
     Dosage: 80 MG, (D2) SINGLE (IN TOTAL)
     Route: 065
     Dates: start: 20200825
  27. PHENYLBUTAZONE [Suspect]
     Active Substance: PHENYLBUTAZONE
     Indication: HYPOVITAMINOSIS
     Dosage: 300 MG, QD
     Route: 065
  28. COLECALCIFEROL [Suspect]
     Active Substance: CHOLECALCIFEROL
     Indication: MINERAL SUPPLEMENTATION
     Dosage: 8 DF, QD
     Route: 065
  29. COLECALCIFEROL [Suspect]
     Active Substance: CHOLECALCIFEROL
     Indication: MINERAL SUPPLEMENTATION
     Dosage: UNK, QD(TABLET(1D) / UNK, QD (TABLET(1D))   )
     Route: 065
  30. COLECALCIFEROL [Suspect]
     Active Substance: CHOLECALCIFEROL
     Dosage: 1 DF, QD(UNK, QD, (UNK UNK, QD) )
     Route: 065
  31. COLECALCIFEROL [Suspect]
     Active Substance: CHOLECALCIFEROL
     Dosage: UNK (DOSE: 1 (UNSPECIFIED UNIT))
     Route: 065
  32. THIAMINE. [Suspect]
     Active Substance: THIAMINE
     Dosage: 300 MG, QD
     Route: 065
  33. CALCIUM + VITAMIN D3 [Suspect]
     Active Substance: CALCIUM\CHOLECALCIFEROL
     Dosage: 2 DF, QD
     Route: 065
  34. CALCIUM + VITAMIN D3 [Suspect]
     Active Substance: CALCIUM\CHOLECALCIFEROL
     Dosage: 1 DF (DOSE: 1 (UNSPECIFIED UNIT)
     Route: 065
  35. CALCIUM [Suspect]
     Active Substance: CALCIUM
     Dosage: 1 DF, QD ((1 UNK, QD )
     Route: 065
  36. ADCAL D3 [Suspect]
     Active Substance: CALCIUM CARBONATE\CHOLECALCIFEROL
     Dosage: 2 DF, QD (2 DF, QD (TABLET), TABLET 2UNK)
     Route: 065
  37. APREPITANT. [Suspect]
     Active Substance: APREPITANT
     Dosage: 80 MG
     Route: 065
     Dates: start: 20200826
  38. APREPITANT. [Suspect]
     Active Substance: APREPITANT
     Dosage: 80 MG (D2 (80MG), IN TOTAL)
     Route: 065
     Dates: start: 20200826
  39. DOMPERIDONE [Suspect]
     Active Substance: DOMPERIDONE
     Indication: SUPPORTIVE CARE
     Dosage: 30 MG, QD, 30 MG, QD (PRN (30 MG,1 D))
     Route: 048
     Dates: start: 20200825
  40. CALCIUM AND COLECALCIFEROL [Suspect]
     Active Substance: CALCIUM\CHOLECALCIFEROL
     Indication: MINERAL SUPPLEMENTATION
     Dosage: UNK, QD, (UNK UNK, QD)
     Route: 065
  41. CALCIUM AND COLECALCIFEROL [Suspect]
     Active Substance: CALCIUM\CHOLECALCIFEROL
     Dosage: 1 DF, QD (1 DF, QD)
     Route: 065
  42. COLECALCIFEROL [Suspect]
     Active Substance: CHOLECALCIFEROL
     Dosage: 1 DF, QD
     Route: 065
  43. CALCIUM [Suspect]
     Active Substance: CALCIUM
     Dosage: 1 DF, QD(UNK, QD, (UNK UNK, QD)  )
     Route: 065
  44. CALCIUM [Suspect]
     Active Substance: CALCIUM
     Dosage: 1 DF, QD(UNK, QD, (UNK UNK, QD))
     Route: 065
  45. CALCIUM [Suspect]
     Active Substance: CALCIUM
     Dosage: UNK, QD (UNK UNK, QD UNK)
     Route: 065
  46. CALCIUM [Suspect]
     Active Substance: CALCIUM
     Dosage: UNK, QD ((UNK UNK, QD)
     Route: 065
  47. CALCIUM [Suspect]
     Active Substance: CALCIUM
     Dosage: UNK, QD ((UNK UNK, QD)
     Route: 065
  48. THIAMINE MONONITRATE [Suspect]
     Active Substance: THIAMINE MONONITRATE
     Indication: HYPOVITAMINOSIS
     Dosage: UNK
     Route: 065
  49. ETOPOSIDE. [Suspect]
     Active Substance: ETOPOSIDE
     Indication: GERM CELL NEOPLASM
     Dosage: UNK
     Route: 065
     Dates: start: 202007
  50. ADCAL D3 [Suspect]
     Active Substance: CALCIUM CARBONATE\CHOLECALCIFEROL
     Dosage: 1 DF, QD  (TABLET(1D); 1DF)
     Route: 065
  51. ADCAL D3 [Suspect]
     Active Substance: CALCIUM CARBONATE\CHOLECALCIFEROL
     Dosage: 1 DF, QD (1 DF; QD TABLETS)
     Route: 065
  52. APREPITANT. [Suspect]
     Active Substance: APREPITANT
     Indication: MINERAL SUPPLEMENTATION
     Dosage: 80 MG,  (D2) SINGLE (IN TOTAL)
     Route: 065
     Dates: start: 20200825
  53. APREPITANT. [Suspect]
     Active Substance: APREPITANT
     Dosage: 125 MG (D1) SINGLE (D1 (125 MG)/125 MG, 1X; IN TOTAL)
     Route: 065
     Dates: start: 20200826
  54. CALCIUM [Suspect]
     Active Substance: CALCIUM
     Dosage: UNK, QD (1 UNK, QD)
     Route: 065
  55. SODIUM CHLORIDE. [Suspect]
     Active Substance: SODIUM CHLORIDE
     Dosage: UNK
     Route: 065
     Dates: start: 20200825, end: 20200825
  56. ADCAL D3 [Suspect]
     Active Substance: CALCIUM CARBONATE\CHOLECALCIFEROL
     Indication: MINERAL SUPPLEMENTATION
     Dosage: 1 DF, QD
     Route: 065
  57. ADCAL D3 [Suspect]
     Active Substance: CALCIUM CARBONATE\CHOLECALCIFEROL
     Dosage: UNK, QD (UNK DF, QD)
     Route: 065
  58. DOMPERIDONE [Suspect]
     Active Substance: DOMPERIDONE
     Dosage: UNK
     Route: 065
  59. PHENYLBUTAZONE [Suspect]
     Active Substance: PHENYLBUTAZONE
     Dosage: 300 MG, QD
     Route: 065
  60. COLECALCIFEROL [Suspect]
     Active Substance: CHOLECALCIFEROL
     Dosage: 1 DF, QD (TABLET(1D) / UNK, QD (TABLET(1D))
     Route: 065
  61. NICOTINE. [Suspect]
     Active Substance: NICOTINE
     Dosage: 21 MG, QD (21 MG, QD, PATCH, EVERY 24 HOURS (21 MG,1 D))
     Route: 065
  62. CALCIUM + VITAMIN D3 [Suspect]
     Active Substance: CALCIUM\CHOLECALCIFEROL
     Indication: MINERAL SUPPLEMENTATION
     Dosage: UNK, QD (UNK UNK, QD)
     Route: 065
  63. CALCIUM + VITAMIN D3 [Suspect]
     Active Substance: CALCIUM\CHOLECALCIFEROL
     Dosage: 8 DF, QD
     Route: 065
  64. CALCIUM [Suspect]
     Active Substance: CALCIUM
     Indication: MINERAL SUPPLEMENTATION
     Dosage: UNK, QD (1 UNK, QD )
     Route: 065
  65. CALCIUM [Suspect]
     Active Substance: CALCIUM
     Dosage: 1 DF, QD(UNK, QD, (UNK UNK, QD )
     Route: 065
  66. SODIUM CHLORIDE. [Suspect]
     Active Substance: SODIUM CHLORIDE
     Dosage: UNK
     Route: 065
     Dates: start: 20200825, end: 20200825
  67. THIAMINE MONONITRATE [Suspect]
     Active Substance: THIAMINE MONONITRATE
     Indication: HYPOVITAMINOSIS
     Dosage: 300 MG, QD
     Route: 065
  68. ETOPOSIDE. [Suspect]
     Active Substance: ETOPOSIDE
     Dosage: 360 MG
     Route: 065
     Dates: start: 202007
  69. ADCAL D3 [Suspect]
     Active Substance: CALCIUM CARBONATE\CHOLECALCIFEROL
     Dosage: 2 DF (TABLET 2 (2 DOSAGE FORMS))
     Route: 065
  70. ADCAL D3 [Suspect]
     Active Substance: CALCIUM CARBONATE\CHOLECALCIFEROL
     Dosage: 1 DF, QD (TABLET 2UNK )
     Route: 065
  71. ADCAL D3 [Suspect]
     Active Substance: CALCIUM CARBONATE\CHOLECALCIFEROL
     Dosage: 2 DF, QD
     Route: 065
  72. DEXAMETHASONE. [Suspect]
     Active Substance: DEXAMETHASONE
     Dosage: 8 MG, QD(8 MG, 1X/DAY )
     Route: 048
     Dates: start: 20200825
  73. APREPITANT. [Suspect]
     Active Substance: APREPITANT
     Indication: SUPPORTIVE CARE
     Dosage: 125 MG D1 (125 MG)
     Route: 065
     Dates: start: 20200825
  74. APREPITANT. [Suspect]
     Active Substance: APREPITANT
     Dosage: 125 MG ( (125 MG (D1) SINGLE (D1 (125 MG)/125 MG,1X IN TOATAL))
     Route: 065
     Dates: start: 20200826
  75. CISPLATIN. [Suspect]
     Active Substance: CISPLATIN
     Indication: GERM CELL NEOPLASM
     Dosage: 79 MG (IN 1 LITER (NOT SPECIFIED)) (79 MG)
     Route: 065
     Dates: start: 20200825
  76. PHENYLBUTAZONE [Suspect]
     Active Substance: PHENYLBUTAZONE
     Dosage: 300 MG, QD
     Route: 065
  77. THIAMINE. [Suspect]
     Active Substance: THIAMINE
     Indication: HYPOVITAMINOSIS
     Dosage: UNK
     Route: 065
  78. CALCIUM [Suspect]
     Active Substance: CALCIUM
     Dosage: UNK, QD ((1 UNK, QD ))
     Route: 065
  79. NAUZELIN [Suspect]
     Active Substance: DOMPERIDONE
     Dosage: 30 MG, QD(30 MG, 1 D (QD), AS NECESSARY )
     Route: 048
     Dates: start: 20200825
  80. NAUZELIN [Suspect]
     Active Substance: DOMPERIDONE
     Dosage: 8 MG, QD
     Route: 048
     Dates: start: 20200825
  81. APREPITANT. [Suspect]
     Active Substance: APREPITANT
     Dosage: 125 MG, (D1 (125 MG)/125 MG, 1X; IN TOTAL/D1)
     Route: 065
     Dates: start: 20200825
  82. DOMPERIDONE [Suspect]
     Active Substance: DOMPERIDONE
     Dosage: 8 MG, QD(8 MILLIGRAM, QD )
     Route: 048
     Dates: start: 20200825
  83. PROPYPHENAZONE [Suspect]
     Active Substance: PROPYPHENAZONE
     Indication: HYPOVITAMINOSIS
     Dosage: 300 MG, QD
     Route: 065
  84. COLECALCIFEROL [Suspect]
     Active Substance: CHOLECALCIFEROL
     Indication: MINERAL SUPPLEMENTATION
     Dosage: UNK, QD
     Route: 065
  85. COLECALCIFEROL [Suspect]
     Active Substance: CHOLECALCIFEROL
     Dosage: 8 DF, QD
     Route: 065
  86. COLECALCIFEROL [Suspect]
     Active Substance: CHOLECALCIFEROL
     Dosage: 8 DF, QD
     Route: 065
  87. NICOTINE. [Suspect]
     Active Substance: NICOTINE
     Indication: DRUG THERAPY
     Dosage: 21 MG, QD (PATCH, EVERY 24 HOURS)
     Route: 065
  88. CALCIUM + VITAMIN D3 [Suspect]
     Active Substance: CALCIUM\CHOLECALCIFEROL
     Dosage: 8 DF, QD (8 DF, QD)
     Route: 065
  89. CALCIUM [Suspect]
     Active Substance: CALCIUM
     Dosage: 8 DF, QD (8 DF, QD)
     Route: 065
  90. CALCIUM [Suspect]
     Active Substance: CALCIUM
     Dosage: 2 DF, QD (((2 DF, QD (TABLET), TABLET 2UNK)
     Route: 065
  91. CALCIUM [Suspect]
     Active Substance: CALCIUM
     Dosage: UNK, QD 9(UNK UNK, QD)
     Route: 065
  92. SODIUM CHLORIDE. [Suspect]
     Active Substance: SODIUM CHLORIDE
     Dosage: 0.9 % (UNKNOWN)
     Route: 065
     Dates: start: 20200825, end: 20200825
  93. NAUZELIN [Suspect]
     Active Substance: DOMPERIDONE
     Indication: SUPPORTIVE CARE
     Dosage: 30 MG, QD (PRN (30 MG,1 D))
     Route: 048
     Dates: start: 20200825
  94. NAUZELIN [Suspect]
     Active Substance: DOMPERIDONE
     Dosage: 8 MG, QD(8 MILLIGRAM, QD )
     Route: 048
     Dates: start: 20200825
  95. ETOPOSIDE. [Suspect]
     Active Substance: ETOPOSIDE
     Dosage: UNK
     Route: 065
     Dates: start: 202007
  96. ADCAL D3 [Suspect]
     Active Substance: CALCIUM CARBONATE\CHOLECALCIFEROL
     Dosage: 1 DF ((TABLET(1D); 1DF)
     Route: 065
  97. PROPYPHENAZONE [Suspect]
     Active Substance: PROPYPHENAZONE
     Dosage: 300 MG, QD
     Route: 065

REACTIONS (1)
  - Hypersensitivity [Recovered/Resolved]

NARRATIVE: CASE EVENT DATE: 20200825
